FAERS Safety Report 11048981 (Version 1)
Quarter: 2015Q2

REPORT INFORMATION
  Report Type: Spontaneous
  Country: BR (occurrence: BR)
  Receive Date: 20150420
  Receipt Date: 20150420
  Transmission Date: 20150821
  Serious: Yes (Hospitalization)
  Sender: FDA-Public Use
  Company Number: BR-DSJP-DSU-2015-112209

PATIENT

DRUGS (9)
  1. DAFLON                             /00426001/ [Concomitant]
     Active Substance: DIOSMIN
     Indication: PERIPHERAL VASCULAR DISORDER
     Dosage: 500 MG, BID, 1 AM AND 1 PM
     Route: 048
     Dates: start: 2004
  2. APRAZ [Concomitant]
     Indication: PRODUCT USED FOR UNKNOWN INDICATION
     Dosage: 1 MG, QD AT NIGHT
  3. LIPISTAT                           /01326102/ [Concomitant]
     Indication: WEIGHT DECREASED
     Dosage: 20 MG, QD AT NIGHT
     Route: 048
     Dates: start: 2014
  4. JANUMET [Concomitant]
     Active Substance: METFORMIN HYDROCHLORIDE\SITAGLIPTIN PHOSPHATE
     Indication: PRODUCT USED FOR UNKNOWN INDICATION
     Dosage: 50/850 MG , QD AM
     Route: 048
     Dates: start: 2013
  5. PURAN [Concomitant]
     Active Substance: LEVOTHYROXINE SODIUM
     Dosage: UNK
  6. OLMETEC HCT [Suspect]
     Active Substance: HYDROCHLOROTHIAZIDE\OLMESARTAN MEDOXOMIL
     Indication: HYPERTENSION
     Dosage: 20/12.5 MG, QD
     Route: 048
     Dates: start: 2011
  7. OLMETEC HCT [Suspect]
     Active Substance: HYDROCHLOROTHIAZIDE\OLMESARTAN MEDOXOMIL
     Dosage: 20/12.5 MG, BID
     Route: 048
  8. PRISTIQ EXTENDED RELEASE [Concomitant]
     Active Substance: DESVENLAFAXINE SUCCINATE
     Indication: FIBROMYALGIA
     Dosage: 50 MG, QD IN AM
     Route: 048
     Dates: start: 2007
  9. PURAN [Concomitant]
     Active Substance: LEVOTHYROXINE SODIUM
     Indication: THYROID DISORDER
     Dosage: 88 MG, QD
     Route: 048
     Dates: start: 2011

REACTIONS (4)
  - Blood pressure increased [Unknown]
  - Off label use [Unknown]
  - Blood glucose increased [Unknown]
  - Nephrolithiasis [Unknown]
